FAERS Safety Report 9732699 (Version 2)
Quarter: 2013Q4

REPORT INFORMATION
  Report Type: Spontaneous
  Country: JP (occurrence: JP)
  Receive Date: 20131205
  Receipt Date: 20131205
  Transmission Date: 20140711
  Serious: Yes (Hospitalization, Other)
  Sender: FDA-Public Use
  Company Number: JP-BAYER-2013-143908

PATIENT
  Age: 83 Year
  Sex: Female
  Weight: 48.07 kg

DRUGS (3)
  1. ACETYLSALICYLIC ACID({=100 MG) [Suspect]
     Indication: ANTIPLATELET THERAPY
     Dosage: 100 MG, DAILY DOSE
     Route: 048
  2. WARFARIN POTASSIUM [Interacting]
     Indication: ANTICOAGULANT THERAPY
     Dosage: 1 MG, DAILY DOSE
     Route: 048
  3. PREGABALIN [Concomitant]

REACTIONS (8)
  - Spinal epidural haematoma [None]
  - Renal impairment [None]
  - Thoracic vertebral fracture [None]
  - Fall [None]
  - Acetabulum fracture [None]
  - Coagulation time prolonged [Recovered/Resolved]
  - Anaemia [None]
  - Labelled drug-drug interaction medication error [None]
